FAERS Safety Report 7388005-2 (Version None)
Quarter: 2011Q1

REPORT INFORMATION
  Report Type: 
  Country: None (occurrence: None)
  Receive Date: 20110322
  Receipt Date: 20110309
  Transmission Date: 20110831
  Serious: Yes (Hospitalization, Other)
  Sender: FDA-Public Use
  Company Number: WAES 1011USA00380

PATIENT
  Age: 64 Year
  Sex: Female

DRUGS (1)
  1. CAP VORINOSTAT [Suspect]
     Indication: MULTIPLE MYELOMA
     Dosage: 300 MG, DAILY, PO
     Route: 048
     Dates: start: 20100803

REACTIONS (5)
  - NEOPLASM MALIGNANT [None]
  - MULTIPLE MYELOMA [None]
  - NEUROPATHY PERIPHERAL [None]
  - PNEUMOCYSTIS JIROVECI PNEUMONIA [None]
  - ACCIDENTAL OVERDOSE [None]
